FAERS Safety Report 8785397 (Version 4)
Quarter: 2013Q1

REPORT INFORMATION
  Report Type: Report from Study
  Country: JP (occurrence: JP)
  Receive Date: 20120914
  Receipt Date: 20130220
  Transmission Date: 20140127
  Serious: Yes (Hospitalization)
  Sender: FDA-Public Use
  Company Number: JP-009507513-1209JPN004467

PATIENT
  Age: 18 Year
  Sex: Male
  Weight: 50 kg

DRUGS (12)
  1. PEGINTRON [Suspect]
     Indication: CHRONIC HEPATITIS C
     Dosage: 1.5 MICROGRAM PER KILOGRAM, QW
     Route: 058
     Dates: start: 20120804, end: 20120824
  2. PEGINTRON [Suspect]
     Dosage: 1.5 MICROGRAM PER KILOGRAM, QW
     Route: 058
     Dates: start: 20120901, end: 20130119
  3. REBETOL [Suspect]
     Indication: CHRONIC HEPATITIS C
     Dosage: 800 MG, QD
     Route: 048
     Dates: start: 20120804, end: 20120824
  4. REBETOL [Suspect]
     Dosage: 800 MG, QD
     Route: 048
     Dates: start: 20120831, end: 20130125
  5. TELAVIC [Suspect]
     Indication: CHRONIC HEPATITIS C
     Dosage: 2250 MG, QD
     Route: 048
     Dates: start: 20120804, end: 20120824
  6. TELAVIC [Suspect]
     Dosage: 1000 MG, QD
     Route: 048
     Dates: start: 20120831, end: 20120905
  7. TELAVIC [Suspect]
     Dosage: 1500 MG,QD
     Route: 048
     Dates: start: 20120906, end: 20120914
  8. TELAVIC [Suspect]
     Dosage: 2000 MG, QD
     Route: 048
     Dates: start: 20120915, end: 20121005
  9. TELAVIC [Suspect]
     Dosage: 2250 MG, QD
     Route: 048
     Dates: start: 20121006
  10. GASMOTIN [Concomitant]
     Indication: PROPHYLAXIS
     Dosage: 15 MG, QD, POR FORMULATION
     Route: 048
     Dates: start: 20120804, end: 20130125
  11. ALLOPURINOL [Concomitant]
     Indication: PROPHYLAXIS
     Dosage: 200 MG, QD, POR FORMULATION
     Route: 048
     Dates: start: 20120831
  12. PREDNISONE [Concomitant]
     Indication: PROPHYLAXIS
     Dosage: 25 MG, QD, POR FORMULATION
     Route: 048

REACTIONS (1)
  - Erythema multiforme [Recovered/Resolved]
